FAERS Safety Report 23802090 (Version 2)
Quarter: 2024Q2

REPORT INFORMATION
  Report Type: Report from Study
  Country: CA (occurrence: CA)
  Receive Date: 20240501
  Receipt Date: 20240617
  Transmission Date: 20240716
  Serious: No
  Sender: FDA-Public Use
  Company Number: CA-ABBVIE-5733708

PATIENT
  Age: 25 Year
  Sex: Female

DRUGS (2)
  1. SKYRIZI [Suspect]
     Active Substance: RISANKIZUMAB-RZAA
     Indication: Crohn^s disease
     Dosage: FIRST INFUSION FREQUENCY TEXT: WEEK 4
     Route: 042
     Dates: start: 20240418
  2. SKYRIZI [Suspect]
     Active Substance: RISANKIZUMAB-RZAA
     Indication: Crohn^s disease
     Route: 042

REACTIONS (9)
  - Muscular weakness [Unknown]
  - Abdominal pain lower [Unknown]
  - Cognitive disorder [Unknown]
  - Vomiting projectile [Unknown]
  - Disorientation [Unknown]
  - Abscess [Unknown]
  - Fear [Unknown]
  - Mouth ulceration [Unknown]
  - Intentional product misuse [Unknown]

NARRATIVE: CASE EVENT DATE: 20240101
